FAERS Safety Report 10871054 (Version 1)
Quarter: 2015Q1

REPORT INFORMATION
  Report Type: Spontaneous
  Country: US (occurrence: US)
  Receive Date: 20150226
  Receipt Date: 20150226
  Transmission Date: 20150721
  Serious: Yes (Death)
  Sender: FDA-Public Use
  Company Number: US-BANPHARM-20153558

PATIENT
  Age: 54 Year
  Sex: Male

DRUGS (3)
  1. VALPROIC ACID UNKNOWN PRODUCT [Suspect]
     Active Substance: VALPROIC ACID
  2. QUETIAPINE [Concomitant]
     Active Substance: QUETIAPINE
  3. DULOXETINE [Concomitant]
     Active Substance: DULOXETINE

REACTIONS (3)
  - Exposure via ingestion [None]
  - Completed suicide [Fatal]
  - Death [Fatal]
